FAERS Safety Report 24167691 (Version 1)
Quarter: 2024Q3

REPORT INFORMATION
  Report Type: Spontaneous
  Country: US (occurrence: US)
  Receive Date: 20240802
  Receipt Date: 20240802
  Transmission Date: 20241016
  Serious: Yes (Other)
  Sender: OTSUKA
  Company Number: US-OTSUKA-2024_021013

PATIENT
  Sex: Male
  Weight: 85.73 kg

DRUGS (4)
  1. ABILIFY [Suspect]
     Active Substance: ARIPIPRAZOLE
     Indication: Dementia
     Dosage: 5 MG, QD
     Route: 065
  2. ARIPIPRAZOLE [Suspect]
     Active Substance: ARIPIPRAZOLE
     Indication: Product used for unknown indication
     Dosage: UNK
     Route: 065
  3. VITAMINS NOS [Concomitant]
     Active Substance: VITAMINS
     Indication: Product used for unknown indication
     Dosage: UNK
     Route: 065
  4. ST. JOSEPH ASPIRIN [Concomitant]
     Indication: Product used for unknown indication
     Dosage: UNK
     Route: 065

REACTIONS (11)
  - Neoplasm malignant [Not Recovered/Not Resolved]
  - Accident at work [Unknown]
  - Rib fracture [Unknown]
  - Diabetes mellitus [Not Recovered/Not Resolved]
  - Adverse drug reaction [Unknown]
  - Prostatomegaly [Not Recovered/Not Resolved]
  - Vitamin D decreased [Not Recovered/Not Resolved]
  - Hyperphagia [Unknown]
  - Fall [Unknown]
  - Weight fluctuation [Unknown]
  - Off label use [Unknown]
